FAERS Safety Report 13680235 (Version 2)
Quarter: 2017Q3

REPORT INFORMATION
  Report Type: Spontaneous
  Country: US (occurrence: US)
  Receive Date: 20170622
  Receipt Date: 20170720
  Transmission Date: 20171127
  Serious: Yes (Other)
  Sender: FDA-Public Use
  Company Number: US-GILEAD-2017-0279278

PATIENT
  Age: 53 Year
  Sex: Male
  Weight: 83.45 kg

DRUGS (4)
  1. AMITIZA [Concomitant]
     Active Substance: LUBIPROSTONE
  2. HARVONI [Suspect]
     Active Substance: LEDIPASVIR\SOFOSBUVIR
     Indication: CHRONIC HEPATITIS C
     Dosage: 1 DF, QD
     Route: 065
     Dates: start: 20170504, end: 20170629
  3. ONDANSETRON [Concomitant]
     Active Substance: ONDANSETRON
  4. VICODIN [Concomitant]
     Active Substance: ACETAMINOPHEN\HYDROCODONE BITARTRATE

REACTIONS (2)
  - Hallucination [Not Recovered/Not Resolved]
  - Vision blurred [Not Recovered/Not Resolved]

NARRATIVE: CASE EVENT DATE: 201705
